FAERS Safety Report 12220411 (Version 1)
Quarter: 2016Q1

REPORT INFORMATION
  Report Type: Spontaneous
  Country: US (occurrence: None)
  Receive Date: 20160329
  Receipt Date: 20160329
  Transmission Date: 20160526
  Serious: Yes (Hospitalization)
  Sender: FDA-Public Use
  Company Number: None

PATIENT
  Age: 59 Year
  Sex: Male
  Weight: 69.7 kg

DRUGS (1)
  1. CEFAZOLIN [Suspect]
     Active Substance: CEFAZOLIN
     Route: 048
     Dates: start: 20151001, end: 20151007

REACTIONS (2)
  - Acute generalised exanthematous pustulosis [None]
  - Urticaria [None]

NARRATIVE: CASE EVENT DATE: 20151007
